FAERS Safety Report 6268038-X (Version None)
Quarter: 2009Q3

REPORT INFORMATION
  Report Type: 
  Country: None (occurrence: None)
  Receive Date: 20090713
  Receipt Date: 20090629
  Transmission Date: 20100115
  Serious: Yes (Other)
  Sender: FDA-Public Use
  Company Number: B0582340A

PATIENT
  Age: 33 Year
  Sex: Male

DRUGS (4)
  1. LAMIVUDINE [Suspect]
     Indication: HIV INFECTION
  2. STAVUDINE [Suspect]
     Indication: HIV INFECTION
  3. EFAVIRENZ [Suspect]
     Indication: HIV INFECTION
  4. FLUCONAZOLE [Suspect]
     Dosage: ORAL
     Route: 048

REACTIONS (6)
  - DISEASE RECURRENCE [None]
  - MENINGITIS CRYPTOCOCCAL [None]
  - NECK PAIN [None]
  - PHOTOPHOBIA [None]
  - VISION BLURRED [None]
  - VOMITING [None]
